FAERS Safety Report 15871114 (Version 2)
Quarter: 2019Q1

REPORT INFORMATION
  Report Type: Report from Study
  Country: None (occurrence: CL)
  Receive Date: 20190126
  Receipt Date: 20190218
  Transmission Date: 20190417
  Serious: Yes (Hospitalization, Disabling, Other)
  Sender: FDA-Public Use
  Company Number: CL-ABBVIE-19K-034-2635695-00

PATIENT
  Age: 47 Year
  Sex: Female

DRUGS (2)
  1. HUMIRA [Suspect]
     Active Substance: ADALIMUMAB
     Indication: CROHN^S DISEASE
     Route: 058
     Dates: end: 20181201
  2. HUMIRA [Suspect]
     Active Substance: ADALIMUMAB
     Indication: CROHN^S DISEASE
     Route: 058
     Dates: start: 20170726

REACTIONS (3)
  - Crohn^s disease [Unknown]
  - Joint range of motion decreased [Recovering/Resolving]
  - Systemic lupus erythematosus [Unknown]

NARRATIVE: CASE EVENT DATE: 20181212
